FAERS Safety Report 24325930 (Version 1)
Quarter: 2024Q3

REPORT INFORMATION
  Report Type: Report from Study
  Country: CH (occurrence: CH)
  Receive Date: 20240917
  Receipt Date: 20240917
  Transmission Date: 20241017
  Serious: Yes (Death)
  Sender: EMD SERONO INC
  Company Number: CH-Merck Healthcare KGaA-2024049061

PATIENT
  Sex: Female

DRUGS (1)
  1. REBIF [Suspect]
     Active Substance: INTERFERON BETA-1A
     Indication: Multiple sclerosis
     Route: 058
     Dates: start: 20031013, end: 2023

REACTIONS (1)
  - General physical health deterioration [Fatal]
